FAERS Safety Report 7478760-5 (Version None)
Quarter: 2011Q2

REPORT INFORMATION
  Report Type: 
  Country: None (occurrence: None)
  Receive Date: 20110513
  Receipt Date: 20110510
  Transmission Date: 20111010
  Serious: Yes (Hospitalization)
  Sender: FDA-Public Use
  Company Number: BR-ROCHE-767345

PATIENT
  Age: 53 Year
  Sex: Male

DRUGS (5)
  1. FLUOROURACIL [Suspect]
     Route: 065
  2. IRINOTECAN HYDROCHLORIDE [Suspect]
     Route: 065
  3. LEUCOVORIN CALCIUM [Suspect]
     Route: 065
  4. AVASTIN [Suspect]
     Route: 065
  5. ANGIPRESS (ATENOLOL) [Concomitant]
     Indication: HYPERTENSION

REACTIONS (1)
  - CORONARY ARTERY STENOSIS [None]
